FAERS Safety Report 18119121 (Version 3)
Quarter: 2021Q2

REPORT INFORMATION
  Report Type: Spontaneous
  Country: US (occurrence: US)
  Receive Date: 20200806
  Receipt Date: 20210630
  Transmission Date: 20210717
  Serious: Yes (Other)
  Sender: FDA-Public Use
  Company Number: US-TEVA-2020-US-1809911

PATIENT
  Sex: Male

DRUGS (4)
  1. DIOVAN [Suspect]
     Active Substance: VALSARTAN
     Indication: HYPERTENSION
     Route: 065
  2. VALSARTAN MYLAN [Suspect]
     Active Substance: VALSARTAN
     Indication: HYPERTENSION
     Route: 065
     Dates: start: 20150319, end: 20160425
  3. VALSARTAN SOLCO [Suspect]
     Active Substance: VALSARTAN
     Indication: HYPERTENSION
     Route: 065
     Dates: start: 20161026, end: 20180605
  4. VALSARTAN SANDOZ [Suspect]
     Active Substance: VALSARTAN
     Indication: HYPERTENSION
     Dates: start: 20141010, end: 20141217

REACTIONS (1)
  - Colorectal cancer [Unknown]
